FAERS Safety Report 7632722-3 (Version None)
Quarter: 2011Q3

REPORT INFORMATION
  Report Type: 
  Country: None (occurrence: None)
  Receive Date: 20110725
  Receipt Date: 20110105
  Transmission Date: 20111222
  Serious: No
  Sender: FDA-Public Use
  Company Number: US-BRISTOL-MYERS SQUIBB COMPANY-15428618

PATIENT
  Age: 76 Year
  Sex: Female
  Weight: 62 kg

DRUGS (6)
  1. XANAX [Concomitant]
  2. BENAZEPRIL HYDROCHLORIDE [Concomitant]
  3. COUMADIN [Suspect]
     Dosage: AT NIGHT 3 MONTHS AGO,ALSO RECEIVED 1 MG TABLET
     Dates: start: 20100101
  4. DILANTIN [Concomitant]
  5. LEVOTHYROXINE SODIUM [Concomitant]
  6. NORVASC [Concomitant]

REACTIONS (8)
  - ASTHENIA [None]
  - WEIGHT DECREASED [None]
  - DRUG INEFFECTIVE [None]
  - MUSCLE TIGHTNESS [None]
  - ANXIETY [None]
  - INTERNATIONAL NORMALISED RATIO INCREASED [None]
  - CONTUSION [None]
  - DECREASED APPETITE [None]
